FAERS Safety Report 6273515-1 (Version None)
Quarter: 2009Q3

REPORT INFORMATION
  Report Type: 
  Country: None (occurrence: None)
  Receive Date: 20090720
  Receipt Date: 20090708
  Transmission Date: 20100115
  Serious: Yes (Other)
  Sender: FDA-Public Use
  Company Number: DE-BAYER-200925190GPV

PATIENT
  Age: 41 Year
  Sex: Female
  Weight: 69 kg

DRUGS (2)
  1. MIRENA [Suspect]
     Indication: MENORRHAGIA
     Route: 015
     Dates: start: 20071101, end: 20090101
  2. PRIMOLUT-NOR [Suspect]
     Indication: METRORRHAGIA
     Route: 048
     Dates: start: 20081201

REACTIONS (48)
  - ABDOMINAL DISCOMFORT [None]
  - ABDOMINAL DISTENSION [None]
  - ALOPECIA [None]
  - ANOVULATORY CYCLE [None]
  - ANXIETY [None]
  - ASTHMA [None]
  - BLOOD PRESSURE FLUCTUATION [None]
  - CHEST DISCOMFORT [None]
  - CONJUNCTIVITIS [None]
  - CONSTIPATION [None]
  - COUGH [None]
  - DEPRESSED MOOD [None]
  - DISTURBANCE IN ATTENTION [None]
  - DIZZINESS [None]
  - DRY SKIN [None]
  - DYSPHONIA [None]
  - DYSPNOEA [None]
  - FATIGUE [None]
  - FEELING COLD [None]
  - HEADACHE [None]
  - HEPATIC ENZYME INCREASED [None]
  - HIRSUTISM [None]
  - HYPOTENSION [None]
  - INSOMNIA [None]
  - LARYNGITIS [None]
  - LIBIDO DECREASED [None]
  - MIGRAINE WITH AURA [None]
  - MOOD SWINGS [None]
  - MUCOSAL DRYNESS [None]
  - MUSCLE SPASMS [None]
  - MUSCULAR WEAKNESS [None]
  - MYALGIA [None]
  - NAUSEA [None]
  - NERVOUSNESS [None]
  - NIGHT SWEATS [None]
  - OEDEMA PERIPHERAL [None]
  - PALPITATIONS [None]
  - PANIC DISORDER [None]
  - PARAESTHESIA [None]
  - PREMENSTRUAL SYNDROME [None]
  - SINUSITIS [None]
  - SKIN IRRITATION [None]
  - TACHYCARDIA [None]
  - TINNITUS [None]
  - TRICHORRHEXIS [None]
  - VAGINAL HAEMORRHAGE [None]
  - VULVOVAGINAL CANDIDIASIS [None]
  - WEIGHT BEARING DIFFICULTY [None]
